FAERS Safety Report 21040873 (Version 1)
Quarter: 2022Q3

REPORT INFORMATION
  Report Type: Spontaneous
  Country: US (occurrence: US)
  Receive Date: 20220704
  Receipt Date: 20220704
  Transmission Date: 20221026
  Serious: No
  Sender: FDA-Public Use
  Company Number: US-SA-SAC20220629000365

PATIENT
  Age: 62 Year
  Sex: Female

DRUGS (10)
  1. DUPIXENT [Suspect]
     Active Substance: DUPILUMAB
     Indication: Dermatitis atopic
     Dosage: 300 MG, QOW
     Route: 058
     Dates: start: 201910
  2. ASPIRIN [Concomitant]
     Active Substance: ASPIRIN
  3. CALCIUM CARBONATE [Concomitant]
     Active Substance: CALCIUM CARBONATE
  4. CETIRIZINE [Concomitant]
     Active Substance: CETIRIZINE HYDROCHLORIDE
  5. ELIDEL [Concomitant]
     Active Substance: PIMECROLIMUS
  6. EUCRISA [Concomitant]
     Active Substance: CRISABOROLE
  7. NIZORAL [Concomitant]
     Active Substance: KETOCONAZOLE
  8. TYLENOL [Concomitant]
     Active Substance: ACETAMINOPHEN
  9. VITAMIN D3 [Concomitant]
     Active Substance: CHOLECALCIFEROL
  10. LEVOCABASTINE HYDROCHLORIDE [Concomitant]
     Active Substance: LEVOCABASTINE HYDROCHLORIDE

REACTIONS (2)
  - Dermatitis atopic [Unknown]
  - Drug ineffective [Unknown]
